FAERS Safety Report 6003045-3 (Version None)
Quarter: 2008Q4

REPORT INFORMATION
  Report Type: 
  Country: None (occurrence: None)
  Receive Date: 20081215
  Receipt Date: 20081203
  Transmission Date: 20090506
  Serious: Yes (Other)
  Sender: FDA-Public Use
  Company Number: US-PFIZER INC-2008151670

PATIENT
  Sex: Male

DRUGS (1)
  1. CARDURA [Suspect]
     Dosage: UNK

REACTIONS (3)
  - CHRONIC LYMPHOCYTIC LEUKAEMIA [None]
  - DIARRHOEA [None]
  - IMMUNE SYSTEM DISORDER [None]
